FAERS Safety Report 20568711 (Version 10)
Quarter: 2024Q2

REPORT INFORMATION
  Report Type: Spontaneous
  Country: US (occurrence: US)
  Receive Date: 20220308
  Receipt Date: 20240605
  Transmission Date: 20240716
  Serious: Yes (Other)
  Sender: FDA-Public Use
  Company Number: US-PFIZER INC-202200093841

PATIENT
  Age: 57 Year
  Sex: Female

DRUGS (3)
  1. XELJANZ XR [Suspect]
     Active Substance: TOFACITINIB CITRATE
     Indication: Rheumatoid arthritis
     Dosage: 11 MG, 1X/DAY
     Route: 048
     Dates: start: 202201
  2. XELJANZ XR [Suspect]
     Active Substance: TOFACITINIB CITRATE
     Dosage: 11 MG, 1X/DAY
     Route: 048
  3. PLAQUENIL [Concomitant]
     Active Substance: HYDROXYCHLOROQUINE SULFATE
     Dosage: UNK
     Dates: start: 2023

REACTIONS (19)
  - Diverticulitis [Not Recovered/Not Resolved]
  - Movement disorder [Not Recovered/Not Resolved]
  - Gastrointestinal disorder [Unknown]
  - Gastroenteritis viral [Unknown]
  - Vomiting [Unknown]
  - Bursitis [Unknown]
  - Peripheral swelling [Unknown]
  - Pain [Unknown]
  - Musculoskeletal discomfort [Recovering/Resolving]
  - Arthropathy [Recovering/Resolving]
  - Limb discomfort [Unknown]
  - Fatigue [Unknown]
  - Pain in extremity [Unknown]
  - Gait disturbance [Unknown]
  - Blood glucose decreased [Unknown]
  - Blood calcium increased [Unknown]
  - Condition aggravated [Not Recovered/Not Resolved]
  - Drug ineffective [Unknown]
  - Product dose omission in error [Unknown]

NARRATIVE: CASE EVENT DATE: 20220101
